FAERS Safety Report 7918620-6 (Version None)
Quarter: 2011Q4

REPORT INFORMATION
  Report Type: 
  Country: None (occurrence: None)
  Receive Date: 20111114
  Receipt Date: 20111101
  Transmission Date: 20120403
  Serious: Yes (Hospitalization)
  Sender: FDA-Public Use
  Company Number: LEO-2011-00218

PATIENT
  Age: 40 Year
  Sex: Male
  Weight: 61 kg

DRUGS (4)
  1. WARFARIN SODIUM [Suspect]
     Indication: EMBOLISM VENOUS
     Dosage: 2.5 MG (2.5 MG,1 IN 1 D),ORAL ; 5 MG (5 MG,1 IN 1 D),ORAL
     Route: 048
     Dates: start: 20101202, end: 20110202
  2. WARFARIN SODIUM [Suspect]
     Indication: EMBOLISM VENOUS
     Dosage: 2.5 MG (2.5 MG,1 IN 1 D),ORAL ; 5 MG (5 MG,1 IN 1 D),ORAL
     Route: 048
     Dates: start: 20110203, end: 20110220
  3. PACLITAXEL [Concomitant]
  4. CARBOPLATIN [Concomitant]

REACTIONS (8)
  - SUPERIOR SAGITTAL SINUS THROMBOSIS [None]
  - NO THERAPEUTIC RESPONSE [None]
  - LOWER RESPIRATORY TRACT INFECTION [None]
  - TRANSVERSE SINUS THROMBOSIS [None]
  - TREATMENT FAILURE [None]
  - DIARRHOEA [None]
  - FACIAL PARESIS [None]
  - GENERAL PHYSICAL HEALTH DETERIORATION [None]
